FAERS Safety Report 9994382 (Version 1)
Quarter: 2014Q1

REPORT INFORMATION
  Report Type: Spontaneous
  Country: FR (occurrence: FR)
  Receive Date: 20140311
  Receipt Date: 20140311
  Transmission Date: 20141002
  Serious: Yes (Death)
  Sender: FDA-Public Use
  Company Number: FR-ROCHE-1358223

PATIENT
  Age: 50 Year
  Sex: Female

DRUGS (8)
  1. INVIRASE [Suspect]
     Indication: HIV INFECTION
     Route: 048
     Dates: start: 20130307, end: 20130418
  2. PREZISTA [Suspect]
     Indication: HIV TEST POSITIVE
     Route: 048
     Dates: start: 20121218, end: 20130307
  3. DEROXAT [Suspect]
     Indication: PRODUCT USED FOR UNKNOWN INDICATION
     Dosage: 20 MG
     Route: 048
     Dates: start: 20130225, end: 20130418
  4. NORVIR [Suspect]
     Indication: HIV TEST POSITIVE
     Route: 048
     Dates: start: 20121218, end: 20130418
  5. ABILIFY [Suspect]
     Indication: DEPRESSION
     Route: 065
     Dates: start: 20130313, end: 20130412
  6. RISPERDAL [Suspect]
     Indication: DEPRESSION
     Route: 048
     Dates: start: 20130412, end: 20130418
  7. CELSENTRI [Suspect]
     Indication: HIV TEST POSITIVE
     Route: 048
     Dates: start: 20100622, end: 20130418
  8. VIREAD [Suspect]
     Indication: HIV TEST POSITIVE
     Route: 065
     Dates: start: 20100622, end: 20130418

REACTIONS (2)
  - Depression [Fatal]
  - Completed suicide [Fatal]
